FAERS Safety Report 10107452 (Version 2)
Quarter: 2014Q2

REPORT INFORMATION
  Report Type: Report from Study
  Country: AR (occurrence: AR)
  Receive Date: 20140424
  Receipt Date: 20140508
  Transmission Date: 20141212
  Serious: Yes (Death, Other)
  Sender: FDA-Public Use
  Company Number: PHHY2014AR050110

PATIENT
  Age: 28 Year
  Sex: Male

DRUGS (1)
  1. TRILEPTAL [Suspect]
     Indication: PETIT MAL EPILEPSY
     Dosage: 3 DF, DAILY
     Route: 048

REACTIONS (1)
  - Convulsion [Fatal]
